FAERS Safety Report 9073503 (Version 1)
Quarter: 2013Q1

REPORT INFORMATION
  Report Type: Report from Study
  Country: US (occurrence: US)
  Receive Date: 20130129
  Receipt Date: 20130129
  Transmission Date: 20140127
  Serious: No
  Sender: FDA-Public Use
  Company Number: US-ABBOTT-12P-163-0918487-00

PATIENT
  Sex: Female

DRUGS (10)
  1. HUMIRA 40 MG/ 0.8 ML PRE-FILLED SYRINGE [Suspect]
     Indication: CROHN^S DISEASE
     Route: 058
     Dates: start: 201110, end: 201202
  2. HUMIRA 40 MG/ 0.8 ML PRE-FILLED SYRINGE [Suspect]
     Route: 058
     Dates: start: 201202
  3. HYDROCORTISONE [Concomitant]
     Indication: PRODUCT USED FOR UNKNOWN INDICATION
     Route: 048
  4. DEPAKOTE SPRINKLE [Concomitant]
     Indication: CONVULSION
  5. ERYTHROMYCIN [Concomitant]
     Indication: PRODUCT USED FOR UNKNOWN INDICATION
     Dosage: DAILY
  6. PREVACID [Concomitant]
     Indication: PRODUCT USED FOR UNKNOWN INDICATION
  7. SIMETHICONE [Concomitant]
     Indication: PRODUCT USED FOR UNKNOWN INDICATION
  8. CLONOPIN [Concomitant]
     Indication: PRODUCT USED FOR UNKNOWN INDICATION
  9. DULCOLAX [Concomitant]
     Indication: GASTROINTESTINAL MOTILITY DISORDER
     Route: 054
  10. ALBUTEROL [Concomitant]
     Indication: ASTHMA
     Route: 055

REACTIONS (9)
  - Crohn^s disease [Not Recovered/Not Resolved]
  - Screaming [Recovering/Resolving]
  - Haematochezia [Not Recovered/Not Resolved]
  - Abdominal distension [Recovering/Resolving]
  - Crohn^s disease [Not Recovered/Not Resolved]
  - Drug effect decreased [Not Recovered/Not Resolved]
  - Therapeutic response unexpected [None]
  - Therapeutic response unexpected [None]
  - Excessive eye blinking [Recovering/Resolving]
